FAERS Safety Report 8394339-5 (Version None)
Quarter: 2012Q2

REPORT INFORMATION
  Report Type: 
  Country: None (occurrence: None)
  Receive Date: 20120530
  Receipt Date: 20120524
  Transmission Date: 20120825
  Serious: Yes (Other)
  Sender: FDA-Public Use
  Company Number: US-JNJFOC-20120519040

PATIENT
  Sex: Male
  Weight: 133.81 kg

DRUGS (5)
  1. PROZAC [Suspect]
     Indication: DEPRESSION
     Route: 065
  2. MULTIPLE VITAMIN [Concomitant]
     Indication: ROUTINE HEALTH MAINTENANCE
     Route: 048
     Dates: start: 20100101
  3. SPORANOX [Suspect]
     Indication: EXPOSURE TO MOULD
     Route: 048
     Dates: start: 20120301
  4. PROZAC [Suspect]
     Route: 065
  5. PROZAC [Suspect]
     Route: 065

REACTIONS (3)
  - DRUG INEFFECTIVE [None]
  - HYPERHIDROSIS [None]
  - DEPRESSION [None]
